FAERS Safety Report 6471318-6 (Version None)
Quarter: 2009Q4

REPORT INFORMATION
  Report Type: 
  Country: None (occurrence: None)
  Receive Date: 20091203
  Receipt Date: 20080509
  Transmission Date: 20100525
  Serious: Yes (Hospitalization, Other)
  Sender: FDA-Public Use
  Company Number: CA-ELI_LILLY_AND_COMPANY-CA200802000849

PATIENT
  Age: 75 Year
  Sex: Female

DRUGS (9)
  1. FORTEO [Suspect]
     Indication: OSTEOPOROSIS
     Dosage: 20 UG, DAILY (1/D)
     Route: 058
     Dates: start: 20070523, end: 20080121
  2. CALCIUM [Concomitant]
  3. VITAMIN D [Concomitant]
  4. OXYCONTIN [Concomitant]
  5. LIPITOR [Concomitant]
  6. MICARDIS [Concomitant]
  7. CORTICOSTEROIDS [Concomitant]
  8. TYLENOL /SCH/ [Concomitant]
     Dosage: UNK, AS NEEDED
  9. OXYCET [Concomitant]

REACTIONS (2)
  - FALL [None]
  - HIP ARTHROPLASTY [None]
